FAERS Safety Report 13948138 (Version 2)
Quarter: 2017Q4

REPORT INFORMATION
  Report Type: Report from Study
  Country: None (occurrence: US)
  Receive Date: 20170908
  Receipt Date: 20171117
  Transmission Date: 20180320
  Serious: Yes (Other)
  Sender: FDA-Public Use
  Company Number: US-ABBVIE-17K-163-2094849-00

PATIENT
  Age: 22 Year
  Sex: Female

DRUGS (2)
  1. CAFFEINE. [Suspect]
     Active Substance: CAFFEINE
     Indication: PRODUCT USED FOR UNKNOWN INDICATION
     Route: 065
  2. HUMIRA [Suspect]
     Active Substance: ADALIMUMAB
     Indication: JUVENILE IDIOPATHIC ARTHRITIS
     Route: 058
     Dates: start: 20170504

REACTIONS (5)
  - Dehydration [Unknown]
  - Headache [Unknown]
  - Loss of consciousness [Recovered/Resolved]
  - Injection site rash [Unknown]
  - Nausea [Unknown]

NARRATIVE: CASE EVENT DATE: 2017
